FAERS Safety Report 6724752-0 (Version None)
Quarter: 2010Q2

REPORT INFORMATION
  Report Type: 
  Country: None (occurrence: None)
  Receive Date: 20100511
  Receipt Date: 20100505
  Transmission Date: 20101027
  Serious: Yes (Life-Threatening, Hospitalization)
  Sender: FDA-Public Use
  Company Number: 2008US002494

PATIENT
  Age: 47 Year
  Sex: Male

DRUGS (4)
  1. ALEFACEPT (ALEFACEPT) INJECTION [Suspect]
     Indication: RENAL TRANSPLANT
     Dosage: 7.5 MG, TOTAL DOSE, IV NOS; 30 MG, EVERY OTHER WEEK, SUBCUTANEOUS
     Dates: start: 20080709, end: 20080709
  2. ALEFACEPT (ALEFACEPT) INJECTION [Suspect]
     Indication: RENAL TRANSPLANT
     Dosage: 7.5 MG, TOTAL DOSE, IV NOS; 30 MG, EVERY OTHER WEEK, SUBCUTANEOUS
     Dates: start: 20080712, end: 20080712
  3. ALEFACEPT (ALEFACEPT) INJECTION [Suspect]
     Indication: RENAL TRANSPLANT
     Dosage: 7.5 MG, TOTAL DOSE, IV NOS; 30 MG, EVERY OTHER WEEK, SUBCUTANEOUS
     Dates: start: 20080716, end: 20080910
  4. PROGRAF [Suspect]
     Indication: RENAL TRANSPLANT
     Dosage: 10 MG, BID, ORAL
     Route: 048
     Dates: start: 20080710, end: 20080919

REACTIONS (3)
  - COLITIS ISCHAEMIC [None]
  - SEPTIC SHOCK [None]
  - WHITE BLOOD CELL COUNT DECREASED [None]
